FAERS Safety Report 10185046 (Version 1)
Quarter: 2014Q2

REPORT INFORMATION
  Report Type: Spontaneous
  Country: JP (occurrence: JP)
  Receive Date: 20140521
  Receipt Date: 20140521
  Transmission Date: 20141212
  Serious: Yes (Other)
  Sender: FDA-Public Use
  Company Number: PHHY2014JP061138

PATIENT
  Age: 65 Year
  Sex: Male
  Weight: 56 kg

DRUGS (5)
  1. RIVASTIGMIN [Suspect]
     Indication: DEMENTIA ALZHEIMER^S TYPE
     Dosage: 1.9 MG, DAILY
     Route: 062
     Dates: start: 20121228, end: 20130207
  2. FOSRENOL [Concomitant]
     Dosage: UNK UKN, UNK
  3. ACECOL [Concomitant]
     Dosage: UNK UKN, UNK
  4. THYRADIN S [Concomitant]
     Dosage: UNK UKN, UNK
  5. REGPARA [Concomitant]
     Dosage: UNK UKN, UNK

REACTIONS (2)
  - Renal failure chronic [Recovered/Resolved]
  - Irritability [Recovered/Resolved]
